FAERS Safety Report 6440330-5 (Version None)
Quarter: 2009Q4

REPORT INFORMATION
  Report Type: 
  Country: None (occurrence: None)
  Receive Date: 20091113
  Receipt Date: 20091030
  Transmission Date: 20100525
  Serious: Yes (Other)
  Sender: FDA-Public Use
  Company Number: PHHY2009KR49197

PATIENT
  Sex: Male
  Weight: 53.3 kg

DRUGS (8)
  1. GLEEVEC [Suspect]
     Indication: GASTROINTESTINAL STROMAL TUMOUR
     Dosage: 400 MG/DAY
     Route: 048
     Dates: start: 20041106, end: 20051031
  2. GLEEVEC [Suspect]
     Dosage: 600 MG/DAY
     Route: 048
     Dates: start: 20051101, end: 20051123
  3. GLEEVEC [Suspect]
     Dosage: 300 MG/DAY
     Route: 048
     Dates: start: 20060111, end: 20070410
  4. GLEEVEC [Suspect]
     Dosage: 400 MG/DAY
     Route: 048
     Dates: start: 20070411
  5. METHYCOBAL [Concomitant]
     Indication: ANAEMIA MEGALOBLASTIC
     Dosage: UNK
     Route: 048
     Dates: start: 20081210
  6. BOLGRE [Concomitant]
     Indication: IRON DEFICIENCY ANAEMIA
     Dosage: UNK
     Route: 048
     Dates: start: 20090115, end: 20090305
  7. FERROUS SULFATE TAB [Concomitant]
     Indication: IRON DEFICIENCY ANAEMIA
     Dosage: UNK
     Route: 048
     Dates: start: 20081210, end: 20090114
  8. FLAGYL [Concomitant]
     Indication: ABSCESS
     Dosage: UNK
     Route: 042
     Dates: start: 20071106, end: 20071110

REACTIONS (3)
  - ABSCESS [None]
  - ANAEMIA [None]
  - BLOOD PRESSURE DECREASED [None]
